FAERS Safety Report 7035219-7 (Version None)
Quarter: 2010Q4

REPORT INFORMATION
  Report Type: 
  Country: None (occurrence: None)
  Receive Date: 20101008
  Receipt Date: 20100921
  Transmission Date: 20110411
  Serious: Yes (Hospitalization, Other)
  Sender: FDA-Public Use
  Company Number: GB-PFIZER INC-2008088144

PATIENT
  Age: 74 Year
  Sex: Male

DRUGS (12)
  1. ATORVASTATIN [Interacting]
     Indication: HYPERCHOLESTEROLAEMIA
     Dosage: 40 MG, 1X/DAY
     Dates: start: 20030101
  2. FUSIDIC ACID [Interacting]
     Indication: OSTEOMYELITIS
     Route: 048
  3. FLUCLOXACILLIN [Interacting]
     Indication: OSTEOMYELITIS
     Dosage: 500 MG, 4X/DAY
     Route: 048
  4. EPOETIN ALFA [Suspect]
     Dosage: 6000 IU, WEEKLY
     Route: 058
  5. ACETYLSALICYLIC ACID SRT [Concomitant]
     Dosage: 75 MG, 1X/DAY
     Route: 048
  6. CLOPIDOGREL [Concomitant]
     Dosage: 75 MG, 1X/DAY
     Route: 048
  7. BISOPROLOL [Concomitant]
     Dosage: 5 MG, 1X/DAY
     Route: 048
  8. SPIRONOLACTONE [Concomitant]
     Dosage: 25 MG, 1X/DAY
     Route: 048
  9. AMLODIPINE [Concomitant]
     Dosage: 5 MG, 1X/DAY
     Route: 048
  10. FUROSEMIDE [Concomitant]
     Dosage: 40 MG, 2X/DAY
     Route: 048
  11. INSULIN [Concomitant]
     Route: 058
  12. LANSOPRAZOLE [Concomitant]
     Dosage: 30 MG, 1X/DAY
     Route: 048

REACTIONS (2)
  - DRUG INTERACTION [None]
  - RHABDOMYOLYSIS [None]
